FAERS Safety Report 5514628-9 (Version None)
Quarter: 2007Q4

REPORT INFORMATION
  Report Type: 
  Country: None (occurrence: None)
  Receive Date: 20071113
  Receipt Date: 20071101
  Transmission Date: 20080405
  Serious: Yes (Other)
  Sender: FDA-Public Use
  Company Number: CH-PFIZER INC-2007074574

PATIENT
  Sex: Female
  Weight: 65 kg

DRUGS (6)
  1. LYRICA [Suspect]
     Route: 048
     Dates: start: 20060206, end: 20060209
  2. CITALOPRAM HYDROBROMIDE [Concomitant]
  3. TOPAMAX [Concomitant]
  4. MS CONTIN [Concomitant]
  5. ACETAMINOPHEN [Concomitant]
  6. NEURONTIN [Concomitant]

REACTIONS (4)
  - INTENTIONAL DRUG MISUSE [None]
  - OVERDOSE [None]
  - PARANOIA [None]
  - PHYSICAL ASSAULT [None]
